FAERS Safety Report 12378514 (Version 2)
Quarter: 2016Q3

REPORT INFORMATION
  Report Type: Spontaneous
  Country: US (occurrence: US)
  Receive Date: 20160517
  Receipt Date: 20160901
  Transmission Date: 20161109
  Serious: No
  Sender: FDA-Public Use
  Company Number: US-RELYPSA-RLY2016000201

PATIENT
  Age: 50 Year
  Sex: Male

DRUGS (6)
  1. PHOSLO [Concomitant]
     Active Substance: CALCIUM ACETATE
  2. SOLIRIS [Concomitant]
     Active Substance: ECULIZUMAB
  3. PROCARDIA [Concomitant]
     Active Substance: NIFEDIPINE
  4. METOLAZONE. [Concomitant]
     Active Substance: METOLAZONE
  5. LISINOPRIL. [Concomitant]
     Active Substance: LISINOPRIL
  6. VELTASSA [Suspect]
     Active Substance: PATIROMER
     Indication: HYPERKALAEMIA
     Dosage: 8.4 G, QD
     Route: 048
     Dates: start: 20160303

REACTIONS (2)
  - Vomiting [Unknown]
  - Diarrhoea [Unknown]

NARRATIVE: CASE EVENT DATE: 20160309
